FAERS Safety Report 5093604-7 (Version None)
Quarter: 2006Q3

REPORT INFORMATION
  Report Type: 
  Country: None (occurrence: None)
  Receive Date: 20060829
  Receipt Date: 20060818
  Transmission Date: 20061208
  Serious: Yes (Death)
  Sender: FDA-Public Use
  Company Number: 147147USA

PATIENT
  Age: 26 Year
  Sex: Male

DRUGS (4)
  1. PURINETHOL [Suspect]
     Indication: CROHN'S DISEASE
  2. AZATHIOPRINE [Suspect]
     Indication: CROHN'S DISEASE
  3. REMICADE [Suspect]
     Indication: CROHN'S DISEASE
  4. CORTICOSTEROIDS [Suspect]
     Indication: CROHN'S DISEASE

REACTIONS (4)
  - ANAEMIA [None]
  - HISTIOCYTOSIS HAEMATOPHAGIC [None]
  - LEUKOPENIA [None]
  - TUBERCULOSIS [None]
